FAERS Safety Report 26124094 (Version 1)
Quarter: 2025Q4

REPORT INFORMATION
  Report Type: Report from Study
  Country: US (occurrence: US)
  Receive Date: 20251205
  Receipt Date: 20251205
  Transmission Date: 20260117
  Serious: Yes (Hospitalization, Other)
  Sender: ABBVIE
  Company Number: US-ABBVIE-6574187

PATIENT
  Age: 80 Year
  Sex: Female

DRUGS (1)
  1. SKYRIZI [Suspect]
     Active Substance: RISANKIZUMAB-RZAA
     Indication: Crohn^s disease
     Route: 058
     Dates: start: 20250609

REACTIONS (5)
  - Peripheral vascular disorder [Unknown]
  - Hypoaesthesia [Not Recovered/Not Resolved]
  - Limb injury [Not Recovered/Not Resolved]
  - Diarrhoea [Recovering/Resolving]
  - Colostomy [Recovering/Resolving]

NARRATIVE: CASE EVENT DATE: 20250101
